FAERS Safety Report 8875699 (Version 3)
Quarter: 2013Q1

REPORT INFORMATION
  Report Type: Spontaneous
  Country: US (occurrence: US)
  Receive Date: 20121023
  Receipt Date: 20130319
  Transmission Date: 20140127
  Serious: Yes (Other)
  Sender: FDA-Public Use
  Company Number: PHEH2012US020677

PATIENT
  Sex: Male

DRUGS (1)
  1. COARTEM/RIAMET [Suspect]
     Indication: PLASMODIUM FALCIPARUM INFECTION
     Dosage: 20/120 MG
     Route: 064
     Dates: start: 20120628, end: 20120701

REACTIONS (2)
  - Respiratory distress [Recovered/Resolved]
  - Foetal exposure during pregnancy [Unknown]
